FAERS Safety Report 19231006 (Version 1)
Quarter: 2021Q2

REPORT INFORMATION
  Report Type: Spontaneous
  Country: DE (occurrence: DE)
  Receive Date: 20210507
  Receipt Date: 20210507
  Transmission Date: 20210717
  Serious: Yes (Other)
  Sender: FDA-Public Use
  Company Number: NVSC2021DE094927

PATIENT
  Age: 15 Year
  Sex: Female

DRUGS (1)
  1. RISPERIDON ? 1 A PHARMA [Suspect]
     Active Substance: RISPERIDONE
     Indication: SCHIZOPHRENIA
     Dosage: 4.5 ML, QD (3 X TAGLICH 1,5 ML)
     Route: 048
     Dates: start: 202103

REACTIONS (3)
  - Schizophrenia [Not Recovered/Not Resolved]
  - Product substitution issue [Unknown]
  - Aggression [Not Recovered/Not Resolved]
